FAERS Safety Report 24172786 (Version 4)
Quarter: 2024Q3

REPORT INFORMATION
  Report Type: Spontaneous
  Country: JP (occurrence: JP)
  Receive Date: 20240805
  Receipt Date: 20240930
  Transmission Date: 20241017
  Serious: Yes (Hospitalization)
  Sender: VIIV
  Company Number: JP-VIIV HEALTHCARE LIMITED-JP2024JPN095451

PATIENT

DRUGS (5)
  1. VOCABRIA [Suspect]
     Active Substance: CABOTEGRAVIR SODIUM
     Dosage: UNK, RE-ADMINISTERED
     Dates: start: 20240708
  2. RILPIVIRINE [Suspect]
     Active Substance: RILPIVIRINE
     Dosage: UNK, RE-ADMINISTERED
     Dates: start: 20240708
  3. VOCABRIA [Suspect]
     Active Substance: CABOTEGRAVIR SODIUM
     Dosage: UNK
     Dates: start: 202406
  4. EDURANT [Suspect]
     Active Substance: RILPIVIRINE HYDROCHLORIDE
     Dosage: UNK
     Dates: start: 202406
  5. CORTRIL [Concomitant]
     Active Substance: HYDROCORTISONE
     Dosage: UNK

REACTIONS (2)
  - Renal disorder [Recovering/Resolving]
  - Pyrexia [Recovering/Resolving]
